FAERS Safety Report 20552861 (Version 1)
Quarter: 2022Q1

REPORT INFORMATION
  Report Type: Report from Study
  Country: US (occurrence: US)
  Receive Date: 20220304
  Receipt Date: 20220304
  Transmission Date: 20220424
  Serious: Yes (Other)
  Sender: FDA-Public Use
  Company Number: US-NOVARTISPH-NVSC2022US046393

PATIENT
  Sex: Male

DRUGS (1)
  1. ENTRESTO [Suspect]
     Active Substance: SACUBITRIL\VALSARTAN
     Indication: Product used for unknown indication
     Dosage: 1 DOSAGE FORM (24/26 MG)
     Route: 065

REACTIONS (5)
  - Cerebrovascular accident [Unknown]
  - Visual impairment [Unknown]
  - Frustration tolerance decreased [Unknown]
  - Weight decreased [Unknown]
  - Wrong technique in product usage process [Unknown]
